FAERS Safety Report 4923488-6 (Version None)
Quarter: 2006Q1

REPORT INFORMATION
  Report Type: 
  Country: None (occurrence: None)
  Receive Date: 20060227
  Receipt Date: 20060213
  Transmission Date: 20060701
  Serious: Yes (Death, Other)
  Sender: FDA-Public Use
  Company Number: PHHO2006US02667

PATIENT
  Age: 59 Year
  Sex: Male
  Weight: 77.5 kg

DRUGS (8)
  1. ZOLEDRONIC ACID VS PLACEBO [Suspect]
     Indication: METASTASES TO BONE
     Dosage: 4 MG, TIW
     Route: 042
     Dates: start: 20051212
  2. TAXOTERE [Concomitant]
     Indication: NON-SMALL CELL LUNG CANCER
     Dosage: 143 MG, TIW
     Route: 042
     Dates: start: 20051212
  3. CARBOPLATIN [Concomitant]
     Indication: NON-SMALL CELL LUNG CANCER
     Dosage: 613.8 MG, TIW
     Route: 042
     Dates: start: 20051212
  4. VITAMIN D [Concomitant]
     Indication: METASTASES TO BONE
  5. CALCIUM GLUCONATE [Concomitant]
     Indication: METASTASES TO BONE
  6. ATIVAN [Concomitant]
  7. OXYCODONE [Concomitant]
  8. AMBIEN [Concomitant]

REACTIONS (9)
  - ABDOMINAL PAIN UPPER [None]
  - BACK PAIN [None]
  - CARDIAC ARREST [None]
  - CHOLELITHIASIS [None]
  - COUGH [None]
  - DYSPNOEA [None]
  - EXCORIATION [None]
  - GASTROOESOPHAGEAL REFLUX DISEASE [None]
  - PRURITUS [None]
